FAERS Safety Report 16276430 (Version 1)
Quarter: 2019Q2

REPORT INFORMATION
  Report Type: Spontaneous
  Country: US (occurrence: US)
  Receive Date: 20190505
  Receipt Date: 20190505
  Transmission Date: 20190711
  Serious: Yes (Other)
  Sender: FDA-Public Use
  Company Number: None

PATIENT
  Sex: Male
  Weight: 14.4 kg

DRUGS (1)
  1. MIRALAX [Suspect]
     Active Substance: POLYETHYLENE GLYCOL 3350
     Indication: CONSTIPATION
     Dosage: ?          QUANTITY:1 TABLESPOON(S);?
     Route: 048
     Dates: start: 20190308, end: 20190328

REACTIONS (10)
  - Feeling abnormal [None]
  - Anxiety [None]
  - Abnormal behaviour [None]
  - Fear [None]
  - Anger [None]
  - Feeling of despair [None]
  - Asthenia [None]
  - Obsessive-compulsive disorder [None]
  - Aggression [None]
  - Nervous system disorder [None]

NARRATIVE: CASE EVENT DATE: 20190326
